FAERS Safety Report 6028495-0 (Version None)
Quarter: 2009Q1

REPORT INFORMATION
  Report Type: 
  Country: None (occurrence: None)
  Receive Date: 20090106
  Receipt Date: 20081219
  Transmission Date: 20090719
  Serious: Yes (Hospitalization)
  Sender: FDA-Public Use
  Company Number: NZ-NOVOPROD-281933

PATIENT
  Age: 73 Year
  Sex: Male

DRUGS (9)
  1. PROTAPHANE HM PENFILL [Suspect]
     Indication: DRUG USE FOR UNKNOWN INDICATION
     Dosage: 36 IU, BID
     Route: 058
  2. PROTAPHANE HM PENFILL [Suspect]
     Dosage: 32 IU IN THE MORNING, 34 IU AT NIGHT
     Route: 058
  3. NOVORAPID PENFILL [Suspect]
     Indication: DRUG USE FOR UNKNOWN INDICATION
     Dosage: 26 IU, QD
     Route: 058
  4. OMEPRAZOLE [Concomitant]
     Dosage: 40 MG, QD
     Route: 048
  5. SERETIDE                           /01420901/ [Concomitant]
     Route: 055
  6. SPIRIVA [Concomitant]
     Route: 055
  7. PREDNISONE [Concomitant]
     Dosage: 20 MG, QD
     Route: 048
  8. FUROSEMIDE [Concomitant]
     Dosage: 20 MG, QD
     Route: 048
  9. ALBUTEROL [Concomitant]

REACTIONS (1)
  - DIABETES MELLITUS INADEQUATE CONTROL [None]
